FAERS Safety Report 12388090 (Version 1)
Quarter: 2016Q2

REPORT INFORMATION
  Report Type: Spontaneous
  Country: ZA (occurrence: ZA)
  Receive Date: 20160520
  Receipt Date: 20160520
  Transmission Date: 20160815
  Serious: Yes (Hospitalization)
  Sender: FDA-Public Use
  Company Number: ZA-LUPIN PHARMACEUTICALS INC.-2016-02013

PATIENT
  Age: 35 Year
  Sex: Female

DRUGS (9)
  1. AMLODIPINE [Suspect]
     Active Substance: AMLODIPINE BESYLATE
     Indication: HYPERTENSION
     Dosage: 10 MG
     Route: 048
     Dates: start: 2013, end: 201604
  2. ONE ALPHA 1 [Concomitant]
     Indication: VITAMIN SUPPLEMENTATION
     Route: 048
     Dates: start: 2012, end: 201604
  3. TRUSTAN [Concomitant]
     Active Substance: ESOMEPRAZOLE
     Indication: GASTRODUODENAL ULCER
     Dosage: 40 MG
     Route: 048
     Dates: start: 2011, end: 201604
  4. BE-TABS PREDNISONE [Concomitant]
     Active Substance: PREDNISONE
     Indication: HYPERSENSITIVITY
     Dosage: 5 MG
     Route: 048
     Dates: start: 2011, end: 201604
  5. TAREG [Concomitant]
     Active Substance: VALSARTAN
     Indication: HYPERTENSION
     Dosage: 160 MG
     Route: 065
     Dates: start: 2014, end: 201604
  6. OXPOLA 2.5 [Concomitant]
     Indication: PARKINSON^S DISEASE
     Dosage: 0.25 MG
     Route: 048
     Dates: start: 2013, end: 201604
  7. SENSIPAR [Concomitant]
     Active Substance: CINACALCET HYDROCHLORIDE
     Indication: HYPERPARATHYROIDISM
     Dosage: 60
     Route: 048
     Dates: start: 2015, end: 201604
  8. CARDURA [Concomitant]
     Active Substance: DOXAZOSIN MESYLATE
     Indication: HYPERTENSION
     Dosage: XL8
     Route: 048
     Dates: start: 2011, end: 201604
  9. ECOTRIN [Concomitant]
     Active Substance: ASPIRIN
     Indication: ANTICOAGULANT THERAPY
     Dosage: 81 MG
     Route: 048
     Dates: start: 2012, end: 201604

REACTIONS (2)
  - Hypotension [Not Recovered/Not Resolved]
  - Blood glucose increased [Not Recovered/Not Resolved]

NARRATIVE: CASE EVENT DATE: 20160416
